FAERS Safety Report 5485230-2 (Version None)
Quarter: 2007Q4

REPORT INFORMATION
  Report Type: 
  Country: None (occurrence: None)
  Receive Date: 20071010
  Receipt Date: 20071004
  Transmission Date: 20080405
  Serious: Yes (Life-Threatening)
  Sender: FDA-Public Use
  Company Number: 2007-164577-NL

PATIENT
  Age: 40 Year
  Sex: Female

DRUGS (8)
  1. VECURONIUM BROMIDE [Suspect]
     Indication: INDUCTION AND MAINTENANCE OF ANAESTHESIA
     Dosage: 0.08 MG/KG/HR PRN INTRAVENOUS DRIP
     Route: 041
     Dates: start: 20070911, end: 20070911
  2. PROPOFOL [Concomitant]
  3. FENTANYL [Concomitant]
  4. TRAMADOL HCL [Concomitant]
  5. ONDANSETRON [Concomitant]
  6. ISOFLURANE [Concomitant]
  7. NITROUS OXIDE [Concomitant]
  8. OXYGEN [Concomitant]

REACTIONS (4)
  - BRAIN DEATH [None]
  - BRAIN OEDEMA [None]
  - NO THERAPEUTIC RESPONSE [None]
  - PROCEDURAL COMPLICATION [None]
